FAERS Safety Report 22207131 (Version 5)
Quarter: 2023Q2

REPORT INFORMATION
  Report Type: Report from Study
  Country: CZ (occurrence: CZ)
  Receive Date: 20230413
  Receipt Date: 20230615
  Transmission Date: 20230721
  Serious: Yes (Other)
  Sender: FDA-Public Use
  Company Number: CZ-BRISTOL-MYERS SQUIBB COMPANY-2023-049613

PATIENT
  Age: 25 Year
  Sex: Female

DRUGS (7)
  1. LENALIDOMIDE [Suspect]
     Active Substance: LENALIDOMIDE
     Indication: Product used for unknown indication
     Dosage: INTENDED DOSE OF 25 MG (ACTUAL DOSE: 25 MG) ORAL FROM 24-AUG-2021 TO 30-MAY-2022
     Route: 050
     Dates: start: 20210824, end: 20220530
  2. LENALIDOMIDE [Suspect]
     Active Substance: LENALIDOMIDE
     Route: 050
     Dates: start: 20220607, end: 20230529
  3. DEXAMETHASONE [Suspect]
     Active Substance: DEXAMETHASONE
     Indication: Product used for unknown indication
     Dosage: 24-AUG-2021, AN INTENDED DOSE OF DEXAMETHASONE WAS 40 MG (ACTUAL DOSE: 40 MG) INTRAVENOUS
     Route: 050
     Dates: start: 20210824, end: 20210824
  4. DEXAMETHASONE [Suspect]
     Active Substance: DEXAMETHASONE
     Dosage: FROM 31-AUG-2021 TO 31-MAY-2022, AN INTENDED DOSE OF DEXAMETHASONE WAS 40 MG (ACTUAL DOSE: 40 MG) OR
     Route: 050
     Dates: start: 20210831, end: 20220531
  5. DEXAMETHASONE [Suspect]
     Active Substance: DEXAMETHASONE
     Route: 050
     Dates: start: 20220607, end: 20230529
  6. ISATUXIMAB [Suspect]
     Active Substance: ISATUXIMAB
     Indication: Product used for unknown indication
     Route: 050
     Dates: start: 20210824, end: 20230529
  7. FEMIBION [Concomitant]
     Indication: Pregnancy
     Dates: start: 202301

REACTIONS (2)
  - Exposure via body fluid [Unknown]
  - Pregnancy with contraceptive device [Unknown]
